FAERS Safety Report 12634751 (Version 5)
Quarter: 2019Q1

REPORT INFORMATION
  Report Type: Spontaneous
  Country: US (occurrence: US)
  Receive Date: 20160808
  Receipt Date: 20190308
  Transmission Date: 20190417
  Serious: Yes (Hospitalization, Other)
  Sender: FDA-Public Use
  Company Number: US-BIOMARINAP-US-2016-110664

PATIENT
  Age: 12 Year
  Sex: Male

DRUGS (4)
  1. ALDURAZYME [Suspect]
     Active Substance: LARONIDASE
     Indication: MUCOPOLYSACCHARIDOSIS I
     Dosage: 11.6 UNITS, UNK
     Route: 041
     Dates: start: 201005, end: 20160725
  2. ALDURAZYME [Suspect]
     Active Substance: LARONIDASE
     Indication: MUCOPOLYSACCHARIDOSIS I
     Dosage: 11.6 UNITS, UNK
     Route: 041
     Dates: start: 20140609
  3. ALDURAZYME [Suspect]
     Active Substance: LARONIDASE
     Dosage: UNK, QW
     Route: 041
     Dates: start: 20190225
  4. ALDURAZYME [Suspect]
     Active Substance: LARONIDASE
     Dosage: 11.6 UNITS, UNK
     Route: 041
     Dates: start: 20181122

REACTIONS (4)
  - Disease progression [Unknown]
  - Hospitalisation [Unknown]
  - Off label use [Recovered/Resolved]
  - Drug ineffective [Unknown]

NARRATIVE: CASE EVENT DATE: 20181122
